FAERS Safety Report 23856185 (Version 1)
Quarter: 2024Q2

REPORT INFORMATION
  Report Type: Spontaneous
  Country: US (occurrence: US)
  Receive Date: 20240515
  Receipt Date: 20240515
  Transmission Date: 20240715
  Serious: No
  Sender: FDA-Public Use
  Company Number: US-TARSUS PHARMACEUTICALS-TSP-US-2024-000056

PATIENT
  Sex: Female

DRUGS (2)
  1. XDEMVY [Suspect]
     Active Substance: LOTILANER
     Indication: Demodex blepharitis
     Dosage: UNK (6 WEEKS)
     Route: 047
     Dates: start: 20240111, end: 2024
  2. XDEMVY [Suspect]
     Active Substance: LOTILANER
     Dosage: UNK
     Route: 047
     Dates: start: 2024

REACTIONS (5)
  - Suspected product contamination [Unknown]
  - Product delivery mechanism issue [Unknown]
  - Liquid product physical issue [Unknown]
  - Product physical issue [Unknown]
  - Therapy interrupted [Unknown]
